FAERS Safety Report 5960292-4 (Version None)
Quarter: 2008Q4

REPORT INFORMATION
  Report Type: 
  Country: None (occurrence: None)
  Receive Date: 20081118
  Receipt Date: 20081118
  Transmission Date: 20090506
  Serious: Yes (Other)
  Sender: FDA-Public Use
  Company Number: None

PATIENT
  Age: 22 Year
  Sex: Female
  Weight: 52.6173 kg

DRUGS (3)
  1. CYMBALTA [Suspect]
     Indication: DEPRESSION
     Dosage: 20MG 1X PER DAY PO
     Route: 048
     Dates: start: 20081017, end: 20081030
  2. CYMBALTA [Suspect]
     Indication: GENERALISED ANXIETY DISORDER
     Dosage: 20MG 1X PER DAY PO
     Route: 048
     Dates: start: 20081017, end: 20081030
  3. CYMBALTA [Suspect]
     Indication: OBSESSIVE-COMPULSIVE DISORDER
     Dosage: 20MG 1X PER DAY PO
     Route: 048
     Dates: start: 20081017, end: 20081030

REACTIONS (10)
  - ABDOMINAL PAIN [None]
  - ANGER [None]
  - CONSTIPATION [None]
  - MENTAL DISORDER [None]
  - NAUSEA [None]
  - NIGHT SWEATS [None]
  - PARAESTHESIA [None]
  - SLEEP DISORDER [None]
  - VERTIGO [None]
  - WEIGHT INCREASED [None]
